FAERS Safety Report 13649879 (Version 2)
Quarter: 2017Q3

REPORT INFORMATION
  Report Type: Spontaneous
  Country: AU (occurrence: AU)
  Receive Date: 20170614
  Receipt Date: 20170710
  Transmission Date: 20171127
  Serious: Yes (Death, Hospitalization)
  Sender: FDA-Public Use
  Company Number: AU-ACTELION-A-CH2017-155104

PATIENT
  Sex: Female

DRUGS (5)
  1. VELETRI [Suspect]
     Active Substance: EPOPROSTENOL
     Indication: PULMONARY ARTERIAL HYPERTENSION
     Dosage: UNK
     Route: 042
     Dates: start: 201608, end: 20170603
  2. ALDACTONE [Concomitant]
     Active Substance: SPIRONOLACTONE
     Dosage: 50 MG, QD
  3. BOSENTAN. [Concomitant]
     Active Substance: BOSENTAN
     Indication: PULMONARY ARTERIAL HYPERTENSION
     Dosage: 250 MG, QD
     Route: 048
     Dates: start: 200811, end: 20170604
  4. SILDENAFIL. [Concomitant]
     Active Substance: SILDENAFIL
     Indication: PULMONARY ARTERIAL HYPERTENSION
     Dosage: 75 MG, QD
     Route: 048
     Dates: start: 201211, end: 20170604
  5. LASIX [Concomitant]
     Active Substance: FUROSEMIDE
     Dosage: 120 MG, QD

REACTIONS (6)
  - Respiratory tract infection [Unknown]
  - Pulmonary arterial hypertension [Fatal]
  - Disease progression [Fatal]
  - Right ventricular failure [Fatal]
  - Respiratory failure [Fatal]
  - Concomitant disease progression [Fatal]

NARRATIVE: CASE EVENT DATE: 201705
